FAERS Safety Report 25341366 (Version 2)
Quarter: 2025Q3

REPORT INFORMATION
  Report Type: Spontaneous
  Country: EU (occurrence: EU)
  Receive Date: 20250521
  Receipt Date: 20250709
  Transmission Date: 20251021
  Serious: Yes (Other)
  Sender: ROCHE
  Company Number: EU-ROCHE-10000283384

PATIENT
  Age: 80 Year
  Sex: Male

DRUGS (3)
  1. ERIVEDGE [Suspect]
     Active Substance: VISMODEGIB
     Indication: Squamous cell carcinoma of skin
     Route: 048
  2. ZIRID [Concomitant]
     Indication: Nausea
  3. ZIRID [Concomitant]
     Indication: Vomiting

REACTIONS (10)
  - Muscle spasms [Recovered/Resolved]
  - Drug ineffective [Unknown]
  - Tendon pain [Unknown]
  - Vomiting [Unknown]
  - Nausea [Unknown]
  - Onychoclasis [Unknown]
  - Skin fissures [Unknown]
  - Alopecia [Unknown]
  - Retching [Unknown]
  - Dyspnoea [Unknown]
